FAERS Safety Report 8512819-6 (Version None)
Quarter: 2012Q3

REPORT INFORMATION
  Report Type: 
  Country: None (occurrence: None)
  Receive Date: 20120716
  Receipt Date: 20120709
  Transmission Date: 20120928
  Serious: No
  Sender: FDA-Public Use
  Company Number: US-009507513-1207USA003174

PATIENT

DRUGS (1)
  1. NOXAFIL [Suspect]
     Indication: FUNGAL SKIN INFECTION
     Dosage: 200 MG, TID
     Route: 048

REACTIONS (1)
  - ARTHRALGIA [None]
